FAERS Safety Report 7775848-6 (Version None)
Quarter: 2011Q3

REPORT INFORMATION
  Report Type: 
  Country: None (occurrence: None)
  Receive Date: 20110923
  Receipt Date: 20110915
  Transmission Date: 20111222
  Serious: Yes (Other)
  Sender: FDA-Public Use
  Company Number: BR-BAXTER-2011BH017201

PATIENT
  Age: 22 Year
  Sex: Male
  Weight: 60 kg

DRUGS (11)
  1. RANITIDINE [Concomitant]
     Indication: THERAPEUTIC PROCEDURE
     Route: 042
     Dates: start: 20110322, end: 20110326
  2. CAPTOPRIL [Concomitant]
     Indication: HYPERTENSION
     Route: 048
     Dates: start: 20110322, end: 20110326
  3. ONDANSETRON [Concomitant]
     Indication: ANTIEMETIC SUPPORTIVE CARE
     Route: 065
     Dates: start: 20110322, end: 20110326
  4. DEXAMETHASONE [Concomitant]
     Indication: PRODUCT USED FOR UNKNOWN INDICATION
     Route: 042
     Dates: start: 20110322, end: 20110326
  5. CYCLOPHOSPHAMIDE [Suspect]
     Indication: PRODUCT USED FOR UNKNOWN INDICATION
     Route: 042
     Dates: start: 20110322, end: 20110326
  6. VINCRISTINE [Concomitant]
     Indication: CHEMOTHERAPY
     Route: 042
     Dates: start: 20110215, end: 20110613
  7. CYCLOPHOSPHAMIDE [Suspect]
     Route: 042
     Dates: start: 20110215, end: 20110219
  8. MESNA [Concomitant]
     Indication: PROPHYLAXIS
     Route: 042
     Dates: start: 20110215, end: 20110613
  9. LEUCOVORIN CALCIUM [Concomitant]
     Indication: PRODUCT USED FOR UNKNOWN INDICATION
     Route: 042
     Dates: start: 20110322, end: 20110326
  10. METHOTREXATE [Concomitant]
     Indication: PRODUCT USED FOR UNKNOWN INDICATION
     Route: 065
  11. DIPYRONE TAB [Concomitant]
     Indication: ANTIPYRESIS
     Route: 042
     Dates: start: 20110318, end: 20110322

REACTIONS (1)
  - DYSPNOEA [None]
